FAERS Safety Report 4808460-9 (Version None)
Quarter: 2005Q4

REPORT INFORMATION
  Report Type: 
  Country: None (occurrence: None)
  Receive Date: 20051025
  Receipt Date: 20051012
  Transmission Date: 20060501
  Serious: Yes (Hospitalization)
  Sender: FDA-Public Use
  Company Number: US-AMGEN-US154560

PATIENT
  Age: 65 Year
  Sex: Male
  Weight: 81.3 kg

DRUGS (6)
  1. NEULASTA [Suspect]
     Indication: CHEMOTHERAPY
     Route: 058
     Dates: start: 20050825
  2. CYTOXAN [Concomitant]
     Route: 042
     Dates: start: 20050822
  3. ADRIAMYCIN PFS [Concomitant]
     Route: 042
     Dates: start: 20050822
  4. VINCRISTINE [Concomitant]
     Route: 042
     Dates: start: 20050822
  5. PREDNISONE TAB [Concomitant]
     Dates: start: 20050822
  6. RITUXAN [Concomitant]
     Route: 042
     Dates: start: 20050822

REACTIONS (2)
  - FEBRILE NEUTROPENIA [None]
  - PNEUMONIA [None]
